FAERS Safety Report 8473855-1 (Version None)
Quarter: 2012Q2

REPORT INFORMATION
  Report Type: 
  Country: None (occurrence: None)
  Receive Date: 20120628
  Receipt Date: 20111229
  Transmission Date: 20120825
  Serious: Yes (Death)
  Sender: FDA-Public Use
  Company Number: US-MYLANLABS-2011S1026467

PATIENT
  Age: 66 Year
  Sex: Female

DRUGS (8)
  1. CLOZAPINE [Suspect]
     Indication: BIPOLAR DISORDER
     Route: 048
     Dates: end: 20111221
  2. DUONEB [Concomitant]
  3. LITHIUM CARBONATE [Concomitant]
  4. VICODIN [Concomitant]
  5. LEVOTHYROXINE [Concomitant]
  6. LORAZEPAM [Concomitant]
  7. HUMALOG [Concomitant]
  8. FENTANYL-100 [Concomitant]

REACTIONS (1)
  - CARDIOPULMONARY FAILURE [None]
